FAERS Safety Report 17292702 (Version 1)
Quarter: 2020Q1

REPORT INFORMATION
  Report Type: Report from Study
  Country: US (occurrence: US)
  Receive Date: 20200121
  Receipt Date: 20200121
  Transmission Date: 20200409
  Serious: Yes (Other)
  Sender: FDA-Public Use
  Company Number: US-BAYER-2019-227083

PATIENT
  Age: 82 Year
  Sex: Female

DRUGS (2)
  1. NEXAVAR [Suspect]
     Active Substance: SORAFENIB
     Indication: HEPATIC CANCER
     Dosage: 200 MG DAILY
     Route: 048
     Dates: start: 20191030, end: 2019
  2. NEXAVAR [Suspect]
     Active Substance: SORAFENIB
     Indication: HEPATIC CANCER
     Dosage: 200 MG, BID
     Route: 048
     Dates: start: 201910, end: 2019

REACTIONS (10)
  - Diarrhoea [Unknown]
  - Hypertension [Not Recovered/Not Resolved]
  - Hypophagia [Unknown]
  - Ear discomfort [Not Recovered/Not Resolved]
  - Nausea [Not Recovered/Not Resolved]
  - Nausea [Unknown]
  - Off label use [None]
  - Hallucination [Not Recovered/Not Resolved]
  - Epistaxis [Not Recovered/Not Resolved]
  - Nasal obstruction [Not Recovered/Not Resolved]

NARRATIVE: CASE EVENT DATE: 20191030
